FAERS Safety Report 4860429-4 (Version None)
Quarter: 2005Q4

REPORT INFORMATION
  Report Type: 
  Country: None (occurrence: None)
  Receive Date: 20051219
  Receipt Date: 20051206
  Transmission Date: 20060501
  Serious: Yes (Other)
  Sender: FDA-Public Use
  Company Number: PHEH2005US13249

PATIENT
  Age: 60 Year
  Sex: Female

DRUGS (4)
  1. DIOVAN HCT [Suspect]
     Indication: HYPERTENSION
     Dosage: 160/12.5 MG
     Dates: start: 20050601
  2. DIOVAN [Suspect]
     Indication: HYPERTENSION
     Dosage: 320 MG, UNK
     Dates: start: 20050601
  3. LISINOPRIL [Concomitant]
  4. TOPROL-XL [Concomitant]

REACTIONS (3)
  - CARDIAC FLUTTER [None]
  - HYPERTENSION [None]
  - TREATMENT NONCOMPLIANCE [None]
